FAERS Safety Report 25237466 (Version 1)
Quarter: 2025Q2

REPORT INFORMATION
  Report Type: Report from Study
  Country: US (occurrence: US)
  Receive Date: 20250425
  Receipt Date: 20250425
  Transmission Date: 20250717
  Serious: No
  Sender: ACADIA PHARMACEUTICALS
  Company Number: US-ACADIA PHARMACEUTICALS INC.-ACA-2025-PIM-004567

PATIENT
  Age: 57 Year
  Sex: Male

DRUGS (18)
  1. NUPLAZID [Suspect]
     Active Substance: PIMAVANSERIN TARTRATE
     Indication: Memory impairment
     Dosage: 10 MILLIGRAM, QD
     Route: 048
     Dates: start: 20240919
  2. HUMALOG KWIKPEN [Concomitant]
     Active Substance: INSULIN LISPRO
  3. TRESIBA [Concomitant]
     Active Substance: INSULIN DEGLUDEC
  4. HUMALOG [Concomitant]
     Active Substance: INSULIN LISPRO
  5. DIPHENHYDRAMINE [Concomitant]
     Active Substance: DIPHENHYDRAMINE
  6. OZEMPIC [Concomitant]
     Active Substance: SEMAGLUTIDE
  7. MECLIZINE [Concomitant]
     Active Substance: MECLIZINE HYDROCHLORIDE
  8. PRAZOSIN [Concomitant]
     Active Substance: PRAZOSIN
  9. BUSPAR [Concomitant]
     Active Substance: BUSPIRONE HYDROCHLORIDE
  10. METHYLPREDNISOLONE ACETATE [Concomitant]
     Active Substance: METHYLPREDNISOLONE ACETATE
  11. CELEBREX [Concomitant]
     Active Substance: CELECOXIB
  12. PROPECIA [Concomitant]
     Active Substance: FINASTERIDE
  13. ACETAMINOPHEN\OXYCODONE HYDROCHLORIDE\OXYCODONE TEREPHTHALATE [Concomitant]
     Active Substance: ACETAMINOPHEN\OXYCODONE HYDROCHLORIDE\OXYCODONE TEREPHTHALATE
  14. LINZESS [Concomitant]
     Active Substance: LINACLOTIDE
  15. GABAPENTIN [Concomitant]
     Active Substance: GABAPENTIN
  16. EMGALITY [Concomitant]
     Active Substance: GALCANEZUMAB-GNLM
  17. MEMANTINE [Concomitant]
     Active Substance: MEMANTINE
  18. TOPAMAX [Concomitant]
     Active Substance: TOPIRAMATE

REACTIONS (3)
  - Dizziness [Unknown]
  - Vertigo [Unknown]
  - Middle ear effusion [Unknown]

NARRATIVE: CASE EVENT DATE: 20250408
